FAERS Safety Report 12372602 (Version 1)
Quarter: 2016Q2

REPORT INFORMATION
  Report Type: Spontaneous
  Country: US (occurrence: US)
  Receive Date: 20160516
  Receipt Date: 20160516
  Transmission Date: 20160815
  Serious: Yes (Death, Hospitalization, Other)
  Sender: FDA-Public Use
  Company Number: US-PFIZER INC-2016257975

PATIENT
  Age: 86 Year
  Sex: Female
  Weight: 77 kg

DRUGS (1)
  1. LYRICA [Suspect]
     Active Substance: PREGABALIN
     Indication: NEUROPATHY PERIPHERAL
     Dosage: 150 MG, 2X/DAY BY MOUTH; TABLET
     Route: 048

REACTIONS (3)
  - Cerebrovascular accident [Fatal]
  - Unresponsive to stimuli [Unknown]
  - Coma [Unknown]

NARRATIVE: CASE EVENT DATE: 201604
